FAERS Safety Report 14918149 (Version 1)
Quarter: 2018Q2

REPORT INFORMATION
  Report Type: Spontaneous
  Country: FR (occurrence: FR)
  Receive Date: 20180521
  Receipt Date: 20180521
  Transmission Date: 20180711
  Serious: Yes (Other)
  Sender: FDA-Public Use
  Company Number: FR-MERCK KGAA-2048126

PATIENT
  Age: 64 Year
  Sex: Female

DRUGS (1)
  1. NOVOTHYROX [Suspect]
     Active Substance: LEVOTHYROXINE SODIUM
     Indication: PRODUCT USED FOR UNKNOWN INDICATION
     Dates: start: 201704

REACTIONS (32)
  - Asthenia [None]
  - Tachycardia [None]
  - Aggression [None]
  - Flatulence [None]
  - Social avoidant behaviour [None]
  - Gamma-glutamyltransferase increased [Not Recovered/Not Resolved]
  - Ligament sprain [None]
  - Dizziness [None]
  - Balance disorder [None]
  - Aspartate aminotransferase increased [Not Recovered/Not Resolved]
  - Fear of falling [None]
  - Emotional distress [None]
  - Diabetes mellitus [None]
  - Red cell distribution width increased [Recovered/Resolved]
  - Depression [None]
  - Decreased interest [None]
  - High density lipoprotein decreased [None]
  - Alopecia [None]
  - Insomnia [None]
  - Blood triglycerides increased [Not Recovered/Not Resolved]
  - Fall [None]
  - Gastric dilatation [None]
  - Gait disturbance [None]
  - Fatigue [None]
  - Blood thyroid stimulating hormone increased [None]
  - Alanine aminotransferase increased [Not Recovered/Not Resolved]
  - Abdominal pain upper [None]
  - Muscle spasms [None]
  - Headache [None]
  - Arthralgia [None]
  - Abdominal pain [None]
  - Diarrhoea [None]

NARRATIVE: CASE EVENT DATE: 201704
